FAERS Safety Report 4659154-4 (Version None)
Quarter: 2005Q2

REPORT INFORMATION
  Report Type: 
  Country: None (occurrence: None)
  Receive Date: 20050511
  Receipt Date: 20030303
  Transmission Date: 20051028
  Serious: Yes (Other)
  Sender: FDA-Public Use
  Company Number: BE-JNJFOC-20040306079

PATIENT
  Sex: Female

DRUGS (1)
  1. PROPULSID [Suspect]
     Indication: GASTROOESOPHAGEAL REFLUX DISEASE
     Dates: start: 20030122, end: 20030130

REACTIONS (2)
  - ELECTROCARDIOGRAM QT PROLONGED [None]
  - NEONATAL DISORDER [None]
